FAERS Safety Report 15001092 (Version 1)
Quarter: 2018Q2

REPORT INFORMATION
  Report Type: Report from Study
  Country: US (occurrence: US)
  Receive Date: 20180612
  Receipt Date: 20180612
  Transmission Date: 20180711
  Serious: Yes (Hospitalization)
  Sender: FDA-Public Use
  Company Number: US-TAKEDA-2018TUS003632

PATIENT
  Age: 57 Year
  Sex: Female
  Weight: 84.81 kg

DRUGS (2)
  1. TAMOXIFEN [Concomitant]
     Active Substance: TAMOXIFEN
     Indication: NEOPLASM MALIGNANT
     Dosage: UNK
  2. VEDOLIZUMAB [Suspect]
     Active Substance: VEDOLIZUMAB
     Indication: CROHN^S DISEASE
     Dosage: UNK
     Route: 042
     Dates: start: 201709, end: 201804

REACTIONS (9)
  - Pain [Unknown]
  - Muscle spasms [Unknown]
  - Rash pruritic [Unknown]
  - Clostridium difficile infection [Recovering/Resolving]
  - Weight increased [Unknown]
  - Ill-defined disorder [Unknown]
  - Drug ineffective [Unknown]
  - Nightmare [Recovered/Resolved]
  - Crohn^s disease [Recovered/Resolved]

NARRATIVE: CASE EVENT DATE: 201804
